FAERS Safety Report 17777613 (Version 3)
Quarter: 2020Q3

REPORT INFORMATION
  Report Type: Other
  Country: DE (occurrence: DE)
  Receive Date: 20200513
  Receipt Date: 20200917
  Transmission Date: 20201102
  Serious: Yes (Hospitalization, Other)
  Sender: FDA-Public Use
  Company Number: DE-MACLEODS PHARMACEUTICALS US LTD-MAC2020026445

PATIENT

DRUGS (20)
  1. COTRIMOXAZOLE [Suspect]
     Active Substance: SULFAMETHOXAZOLE\TRIMETHOPRIM
     Indication: PROPHYLAXIS
     Dosage: 2880 MILLIGRAM, Q.W., 960 MILLIGRAM, T.I.W., SULFAMETHOXAZOLE/TRIMETHOPRIM, SOLUTION FOR INJECTION
     Route: 048
     Dates: start: 20190108
  2. PANTOZOL [Suspect]
     Active Substance: PANTOPRAZOLE SODIUM
     Indication: PROPHYLAXIS
     Dosage: 40 MILLIGRAM, QD,
     Route: 048
     Dates: start: 20190117
  3. XARELTO [Suspect]
     Active Substance: RIVAROXABAN
     Indication: PROPHYLAXIS
     Dosage: 20 MILLIGRAM, QD
     Route: 048
     Dates: start: 20190409, end: 20190429
  4. PLERIXAFOR [Suspect]
     Active Substance: PLERIXAFOR
     Dosage: 0.24 MILLIGRAM/KILOGRAM, QD
     Route: 058
     Dates: start: 20190507, end: 20190507
  5. TORASEMIDE [Suspect]
     Active Substance: TORSEMIDE
     Indication: PRODUCT USED FOR UNKNOWN INDICATION
     Dosage: 5 MILLIGRAM, QD
     Route: 048
     Dates: start: 20190830, end: 20190919
  6. METFORMIN HYDROCHLORIDE 850MG [Suspect]
     Active Substance: METFORMIN HYDROCHLORIDE
     Indication: PRODUCT USED FOR UNKNOWN INDICATION
     Dosage: 850 MILLIGRAM, QD
     Route: 048
     Dates: start: 20190830, end: 20190919
  7. TILIDIN [Suspect]
     Active Substance: NALOXONE HYDROCHLORIDE\TILIDINE HYDROCHLORIDE
     Indication: PRODUCT USED FOR UNKNOWN INDICATION
     Dosage: 16 MILLIGRAM, QD, 8 MG, BID, (ONCE IN 12 HOURS)
     Route: 048
     Dates: start: 20190830, end: 20190919
  8. AMPHO?MORONAL [Suspect]
     Active Substance: AMPHOTERICIN B
     Indication: PROPHYLAXIS
     Dosage: UNK UNK, QID, 1 DAY, FOUR TIMES DAILY
     Route: 048
     Dates: start: 20190830
  9. DELIX (RAMIPRIL) [Suspect]
     Active Substance: RAMIPRIL
     Indication: PRODUCT USED FOR UNKNOWN INDICATION
     Dosage: 5 MILLIGRAM, QD
     Route: 048
     Dates: start: 20190117
  10. AMOCLAV [Concomitant]
     Active Substance: AMOXICILLIN\CLAVULANATE POTASSIUM
     Indication: PROPHYLAXIS
     Dosage: 125 MILLIGRAM, BID (12 HOUR)
     Route: 048
     Dates: start: 20190409, end: 20190414
  11. ALLOPURINOL. [Concomitant]
     Active Substance: ALLOPURINOL
     Indication: PRODUCT USED FOR UNKNOWN INDICATION
     Dosage: 300 MILLIGRAM, QD
     Route: 048
     Dates: start: 20190117, end: 20190419
  12. PLERIXAFOR [Suspect]
     Active Substance: PLERIXAFOR
     Dosage: UNK
     Route: 065
  13. TILIDINE [Suspect]
     Active Substance: TILIDINE
     Indication: PRODUCT USED FOR UNKNOWN INDICATION
     Dosage: 8 MILLIGRAM, BID (12 HOUR)
     Route: 048
     Dates: start: 20190830, end: 20190919
  14. PLERIXAFOR [Suspect]
     Active Substance: PLERIXAFOR
     Indication: PLASMA CELL MYELOMA
     Dosage: UNK, QD
     Route: 058
     Dates: start: 20190505, end: 20190505
  15. TILIDIN [Suspect]
     Active Substance: NALOXONE HYDROCHLORIDE\TILIDINE HYDROCHLORIDE
     Dosage: UNK
     Route: 065
  16. JANUMET [Concomitant]
     Active Substance: METFORMIN HYDROCHLORIDE\SITAGLIPTIN PHOSPHATE
     Indication: PRODUCT USED FOR UNKNOWN INDICATION
     Dosage: 1000 MILLIGRAM, BID (12 HOUR)
     Route: 048
     Dates: start: 20190117, end: 20190419
  17. TORASEMIDE [Suspect]
     Active Substance: TORSEMIDE
     Dosage: UNK
     Route: 065
  18. ACYCLOVIR. [Suspect]
     Active Substance: ACYCLOVIR
     Indication: PROPHYLAXIS
     Dosage: 400 MILLIGRAM, TID (8 HOUR)
     Route: 048
     Dates: start: 20190108
  19. CLINDAMYCIN. [Concomitant]
     Active Substance: CLINDAMYCIN
     Indication: PROPHYLAXIS
     Dosage: 300 MILLIGRAM, QID (6 HOUR)
     Route: 048
     Dates: start: 20190117, end: 20190123
  20. AMPHO?MORONAL [Concomitant]
     Active Substance: AMPHOTERICIN B
     Indication: PROPHYLAXIS
     Dosage: UNK UNK, QID, FOUR TIMES DAILY
     Route: 048
     Dates: start: 20190108, end: 20190409

REACTIONS (2)
  - Escherichia infection [Recovered/Resolved]
  - Febrile neutropenia [Recovered/Resolved]

NARRATIVE: CASE EVENT DATE: 20190902
